FAERS Safety Report 16855715 (Version 2)
Quarter: 2019Q4

REPORT INFORMATION
  Report Type: Spontaneous
  Country: US (occurrence: US)
  Receive Date: 20190926
  Receipt Date: 20191010
  Transmission Date: 20200122
  Serious: Yes (Other)
  Sender: FDA-Public Use
  Company Number: US-GW PHARMA-201909USGW3468

PATIENT

DRUGS (4)
  1. CLOBAZAM. [Suspect]
     Active Substance: CLOBAZAM
     Dosage: WEANING DOWN
     Route: 065
     Dates: start: 2019
  2. EPIDIOLEX [Suspect]
     Active Substance: CANNABIDIOL
     Indication: EPILEPSY
     Dosage: 10.321 MG/KG/DAY, 110 MILLIGRAM, BID
     Route: 048
     Dates: start: 2019, end: 2019
  3. CLOBAZAM. [Suspect]
     Active Substance: CLOBAZAM
     Indication: PRODUCT USED FOR UNKNOWN INDICATION
     Dosage: UNK
     Route: 065
     Dates: end: 2019
  4. EPIDIOLEX [Suspect]
     Active Substance: CANNABIDIOL
     Dosage: INCREASE OF EPIDIOLEX (MEDICATION TITRATION)
     Route: 048
     Dates: start: 2019

REACTIONS (4)
  - Petit mal epilepsy [Recovering/Resolving]
  - Status epilepticus [Recovering/Resolving]
  - Sedation [Unknown]
  - Seizure [Recovering/Resolving]

NARRATIVE: CASE EVENT DATE: 2019
